FAERS Safety Report 16549326 (Version 1)
Quarter: 2019Q3

REPORT INFORMATION
  Report Type: Other
  Country: US (occurrence: US)
  Receive Date: 20190710
  Receipt Date: 20190710
  Transmission Date: 20191004
  Serious: Yes (Life-Threatening, Hospitalization, Other)
  Sender: FDA-Public Use
  Company Number: US-GLAND PHARMA LIMITED-2070580

PATIENT
  Age: 45 Year
  Sex: Male

DRUGS (5)
  1. PEMBROLIZUMAB. [Concomitant]
     Active Substance: PEMBROLIZUMAB
  2. AZACITIDINE. [Concomitant]
     Active Substance: AZACITIDINE
  3. PACLITAXEL. [Suspect]
     Active Substance: PACLITAXEL
     Indication: METASTATIC MALIGNANT MELANOMA
  4. PREDNISONE. [Concomitant]
     Active Substance: PREDNISONE
  5. IPILIMUMAB [Suspect]
     Active Substance: IPILIMUMAB

REACTIONS (2)
  - Tumour lysis syndrome [Unknown]
  - Pancytopenia [Unknown]
